FAERS Safety Report 20533208 (Version 1)
Quarter: 2022Q1

REPORT INFORMATION
  Report Type: Spontaneous
  Country: US (occurrence: None)
  Receive Date: 20220301
  Receipt Date: 20220301
  Transmission Date: 20220424
  Serious: Yes (unspecified)
  Sender: FDA-Public Use
  Company Number: None

PATIENT
  Age: 50 Year
  Sex: Female
  Weight: 66.4 kg

DRUGS (1)
  1. EVUSHELD [Suspect]
     Active Substance: CILGAVIMAB\TIXAGEVIMAB
     Indication: COVID-19 prophylaxis
     Dosage: OTHER FREQUENCY : ONCE, REPEAT IN 6M;?
     Route: 030
     Dates: start: 20220301, end: 20220301

REACTIONS (3)
  - Erythema [None]
  - Nasal pruritus [None]
  - Throat irritation [None]

NARRATIVE: CASE EVENT DATE: 20220301
